FAERS Safety Report 7916453-8 (Version None)
Quarter: 2011Q4

REPORT INFORMATION
  Report Type: 
  Country: None (occurrence: None)
  Receive Date: 20111114
  Receipt Date: 20111028
  Transmission Date: 20120403
  Serious: Yes (Other)
  Sender: FDA-Public Use
  Company Number: FK201102485

PATIENT
  Age: 51 Year
  Sex: Male

DRUGS (2)
  1. SIMVASTATIN [Concomitant]
  2. BUPIVACAINE (MANUFACTURER UNKNOWN) (BUPIVACAINE) (BUPIVACAINE) [Suspect]
     Indication: POSTOPERATIVE ANALGESIA
     Dosage: TOTAL DOSE 770 MG

REACTIONS (8)
  - HEPATIC FIBROSIS [None]
  - FATIGUE [None]
  - DIZZINESS [None]
  - HEPATOTOXICITY [None]
  - HYPERHIDROSIS [None]
  - HYPOTENSION [None]
  - CHOLESTASIS [None]
  - PRURITUS [None]
